FAERS Safety Report 8376371-0 (Version None)
Quarter: 2012Q1

REPORT INFORMATION
  Report Type: 
  Country: None (occurrence: None)
  Receive Date: 20120323
  Receipt Date: 20110428
  Transmission Date: 20120608
  Serious: Yes (Other)
  Sender: FDA-Public Use
  Company Number: 163-21880-11050065

PATIENT
  Age: 59 Year
  Sex: Male
  Weight: 99.7913 kg

DRUGS (8)
  1. REVLIMID [Suspect]
     Indication: MULTIPLE MYELOMA
     Dosage: 25 MG, 1 IN 1 D, PO, 15-10-25-10MG, DAILY, PO, 25 MG, 1 IN 1 D, PO
     Route: 048
     Dates: start: 20090501, end: 20090101
  2. REVLIMID [Suspect]
     Indication: MULTIPLE MYELOMA
     Dosage: 25 MG, 1 IN 1 D, PO, 15-10-25-10MG, DAILY, PO, 25 MG, 1 IN 1 D, PO
     Route: 048
     Dates: start: 20090801, end: 20100101
  3. REVLIMID [Suspect]
     Indication: MULTIPLE MYELOMA
     Dosage: 25 MG, 1 IN 1 D, PO, 15-10-25-10MG, DAILY, PO, 25 MG, 1 IN 1 D, PO
     Route: 048
     Dates: start: 20110201, end: 20110401
  4. DEXAMETHASONE [Concomitant]
  5. NEURONTIN [Concomitant]
  6. LEXAPRO [Concomitant]
  7. CIRCUMIN (TURMERIC) [Concomitant]
  8. VELCADE [Concomitant]

REACTIONS (4)
  - LIGHT CHAIN ANALYSIS INCREASED [None]
  - PLATELET COUNT DECREASED [None]
  - DRUG INTOLERANCE [None]
  - NO THERAPEUTIC RESPONSE [None]
